FAERS Safety Report 8378533-5 (Version None)
Quarter: 2012Q2

REPORT INFORMATION
  Report Type: 
  Country: None (occurrence: None)
  Receive Date: 20120522
  Receipt Date: 20120518
  Transmission Date: 20120825
  Serious: Yes (Other)
  Sender: FDA-Public Use
  Company Number: BR-ABBOTT-12P-020-0936585-00

PATIENT
  Sex: Male

DRUGS (11)
  1. PHENOBARBITAL TAB [Suspect]
     Route: 048
  2. CLONAZEPAM [Suspect]
     Indication: EPILEPSY
     Route: 048
  3. PHENYTOIN [Concomitant]
     Indication: EPILEPSY
     Route: 048
  4. DIALODON [Concomitant]
     Indication: EPILEPSY
     Route: 048
  5. TOPIRAMATE [Suspect]
     Indication: EPILEPSY
     Route: 048
  6. PHENYTOIN [Concomitant]
     Route: 048
  7. FRISIUM [Concomitant]
     Indication: EPILEPSY
     Route: 048
  8. DEPAKENE [Suspect]
     Indication: EPILEPSY
     Route: 048
  9. TOPIRAMATE [Suspect]
     Route: 048
  10. DEPAKENE [Suspect]
     Route: 048
  11. PHENOBARBITAL TAB [Suspect]
     Indication: EPILEPSY
     Route: 048

REACTIONS (9)
  - SOMNOLENCE [None]
  - FOOD AVERSION [None]
  - WEIGHT DECREASED [None]
  - CONVULSION [None]
  - ACTIVITIES OF DAILY LIVING IMPAIRED [None]
  - DECREASED APPETITE [None]
  - EPILEPSY [None]
  - AMNESIA [None]
  - CEREBRAL DISORDER [None]
